FAERS Safety Report 5568252-2 (Version None)
Quarter: 2007Q4

REPORT INFORMATION
  Report Type: 
  Country: None (occurrence: None)
  Receive Date: 20071220
  Receipt Date: 20071218
  Transmission Date: 20080405
  Serious: Yes (Hospitalization)
  Sender: FDA-Public Use
  Company Number: HQWYE810707APR05

PATIENT
  Sex: Female
  Weight: 63 kg

DRUGS (4)
  1. PROGRAF [Suspect]
     Indication: PROPHYLAXIS AGAINST TRANSPLANT REJECTION
     Dosage: 8 MG, UNKNOWN FREQUENCY
     Route: 048
     Dates: start: 20050318, end: 20050418
  2. PREDNISONE [Suspect]
     Indication: PROPHYLAXIS AGAINST TRANSPLANT REJECTION
     Dosage: 20 MG, UNKNOWN FREQUENCY
     Route: 048
  3. DACLIZUMAB [Suspect]
     Indication: PROPHYLAXIS AGAINST TRANSPLANT REJECTION
     Dosage: 2 X 100 MG, UNKNOWN FREQUENCY
     Route: 048
  4. PERINDOPRIL ERBUMINE [Suspect]
     Indication: PROPHYLAXIS AGAINST TRANSPLANT REJECTION
     Dosage: 2000 MG, UNKNOWN FREQUENCY
     Route: 048
     Dates: start: 20050318

REACTIONS (2)
  - DRUG TOXICITY [None]
  - SINUSITIS [None]
